FAERS Safety Report 7480290-1 (Version None)
Quarter: 2011Q2

REPORT INFORMATION
  Report Type: 
  Country: None (occurrence: None)
  Receive Date: 20110502
  Receipt Date: 20110502
  Transmission Date: 20111010
  Serious: Yes (Life-Threatening, Other)
  Sender: FDA-Public Use
  Company Number: None

PATIENT
  Age: 65 Year
  Sex: Female
  Weight: 59.8748 kg

DRUGS (1)
  1. SULFASALAZINE [Suspect]
     Indication: ARTHRITIS
     Dosage: 2000MG / DAY
     Dates: start: 20110303, end: 20110323

REACTIONS (7)
  - VOMITING [None]
  - OROPHARYNGEAL BLISTERING [None]
  - DIARRHOEA [None]
  - FEELING ABNORMAL [None]
  - ASTHENIA [None]
  - RASH GENERALISED [None]
  - FEELING COLD [None]
